FAERS Safety Report 7011980-2 (Version None)
Quarter: 2010Q3

REPORT INFORMATION
  Report Type: 
  Country: None (occurrence: None)
  Receive Date: 20100924
  Receipt Date: 20100412
  Transmission Date: 20110219
  Serious: Yes (Other)
  Sender: FDA-Public Use
  Company Number: US-ASTRAZENECA-2008UW24379

PATIENT
  Age: 17792 Day
  Sex: Female
  Weight: 105.2 kg

DRUGS (12)
  1. SEROQUEL [Suspect]
     Route: 048
     Dates: start: 20050912
  2. SEROQUEL [Suspect]
     Route: 048
     Dates: start: 20060630
  3. TRILEPTAL [Concomitant]
     Dates: start: 20050912
  4. TRILEPTAL [Concomitant]
     Dates: start: 20050912
  5. ZYPREXA [Concomitant]
     Dates: start: 20050912
  6. CLONAZEPAM [Concomitant]
     Dates: start: 20050912
  7. CLONAZEPAM [Concomitant]
     Dosage: AS REQUIRED
     Dates: start: 20060630
  8. ZOLOFT [Concomitant]
     Dates: start: 20050912
  9. ZOLOFT [Concomitant]
     Dates: start: 20060630
  10. ABILIFY [Concomitant]
     Dates: start: 20060630
  11. MOTRIN [Concomitant]
     Dates: start: 20060630
  12. FLEXERIL [Concomitant]
     Dates: start: 20060630

REACTIONS (2)
  - NERVE COMPRESSION [None]
  - TYPE 2 DIABETES MELLITUS [None]
